FAERS Safety Report 5738498-9 (Version None)
Quarter: 2008Q2

REPORT INFORMATION
  Report Type: 
  Country: None (occurrence: None)
  Receive Date: 20080515
  Receipt Date: 20080506
  Transmission Date: 20081010
  Serious: Yes (Disabling)
  Sender: FDA-Public Use
  Company Number: GB-RANBAXY-2008RR-14968

PATIENT

DRUGS (2)
  1. VERAPAMIL TABLETS BP 120MG [Suspect]
     Indication: HYPERTENSION
     Dosage: 120 MG, QD
     Route: 048
     Dates: start: 19980101, end: 20060101
  2. INDAPAMIDE [Suspect]
     Indication: HYPERTENSION
     Dosage: 2.5 MG, QD
     Route: 048
     Dates: start: 19910101, end: 20060101

REACTIONS (1)
  - AXONAL NEUROPATHY [None]
